FAERS Safety Report 21693683 (Version 1)
Quarter: 2022Q4

REPORT INFORMATION
  Report Type: Spontaneous
  Country: US (occurrence: None)
  Receive Date: 20221207
  Receipt Date: 20221207
  Transmission Date: 20230112
  Serious: Yes (Hospitalization, Other)
  Sender: FDA-Public Use
  Company Number: 2022A393958

PATIENT
  Sex: Female
  Weight: 81.6 kg

DRUGS (1)
  1. PULMICORT FLEXHALER [Suspect]
     Active Substance: BUDESONIDE
     Indication: Asthma
     Dosage: 180MCG, 2 INHALATIONS TWICE DAILY
     Route: 055

REACTIONS (5)
  - Bone cancer [Not Recovered/Not Resolved]
  - Breast cancer recurrent [Unknown]
  - Neoplasm malignant [Unknown]
  - Back pain [Not Recovered/Not Resolved]
  - Liver disorder [Not Recovered/Not Resolved]

NARRATIVE: CASE EVENT DATE: 20190101
